FAERS Safety Report 8318352-9 (Version None)
Quarter: 2012Q2

REPORT INFORMATION
  Report Type: 
  Country: None (occurrence: None)
  Receive Date: 20120427
  Receipt Date: 20090928
  Transmission Date: 20120825
  Serious: No
  Sender: FDA-Public Use
  Company Number: US-TEVA-2009009070

PATIENT
  Sex: Female
  Weight: 68.1 kg

DRUGS (16)
  1. NUVIGIL [Suspect]
     Indication: SLEEP APNOEA SYNDROME
     Dosage: 250 MILLIGRAM;
     Route: 048
     Dates: start: 20090713, end: 20090724
  2. ACIPHEX [Concomitant]
     Indication: GASTROOESOPHAGEAL REFLUX DISEASE
  3. FLONASE [Concomitant]
     Indication: HYPERSENSITIVITY
  4. LASIX [Concomitant]
  5. KLOR-CON [Concomitant]
  6. NUVIGIL [Suspect]
     Dosage: 150 MILLIGRAM;
     Route: 048
     Dates: start: 20090725
  7. PRISTIQ [Concomitant]
     Indication: MENOPAUSE
     Dates: start: 20090301
  8. MIRAPEX [Concomitant]
     Indication: RESTLESS LEGS SYNDROME
     Dates: start: 20090101, end: 20090701
  9. PATANASE [Concomitant]
     Indication: HYPERSENSITIVITY
  10. FLONASE [Concomitant]
     Indication: ASTHMA
     Dates: start: 20090501
  11. ZANTAC [Concomitant]
     Indication: GASTROOESOPHAGEAL REFLUX DISEASE
     Dates: start: 20090601
  12. ASPIRIN [Concomitant]
     Indication: MIGRAINE
     Dates: start: 20090401
  13. PATANASE [Concomitant]
     Indication: ASTHMA
     Dates: start: 20090101
  14. FEXOFENADINE [Concomitant]
     Indication: HYPERSENSITIVITY
  15. NAPROXEN [Concomitant]
     Dates: start: 20081201
  16. PROMETRIUM [Concomitant]
     Indication: MENOPAUSE
     Dates: start: 20090301

REACTIONS (7)
  - SOMNOLENCE [None]
  - HEADACHE [None]
  - DISTURBANCE IN ATTENTION [None]
  - RESTLESS LEGS SYNDROME [None]
  - INHIBITORY DRUG INTERACTION [None]
  - VISION BLURRED [None]
  - FATIGUE [None]
